FAERS Safety Report 5105913-3 (Version None)
Quarter: 2006Q3

REPORT INFORMATION
  Report Type: 
  Country: None (occurrence: None)
  Receive Date: 20060912
  Receipt Date: 20060829
  Transmission Date: 20061208
  Serious: Yes (Hospitalization)
  Sender: FDA-Public Use
  Company Number: 2005BI018296

PATIENT
  Age: 51 Year
  Sex: Male

DRUGS (3)
  1. AVONEX [Suspect]
     Indication: MULTIPLE SCLEROSIS
     Dosage: 30 UG; QW; IM
     Route: 030
     Dates: start: 19961001
  2. AVONEX [Suspect]
     Indication: MULTIPLE SCLEROSIS
     Dosage: 30 UG; QW; IM
     Route: 030
  3. PREDNISONE [Concomitant]

REACTIONS (14)
  - BENIGN LUNG NEOPLASM [None]
  - BLOOD PRESSURE DECREASED [None]
  - DEVICE FAILURE [None]
  - GASTROINTESTINAL DISORDER [None]
  - HIP ARTHROPLASTY [None]
  - JOINT INJURY [None]
  - LUNG DISORDER [None]
  - MEDICAL DEVICE COMPLICATION [None]
  - MULTIPLE SCLEROSIS [None]
  - MULTIPLE SCLEROSIS RELAPSE [None]
  - NECROSIS [None]
  - OVERDOSE [None]
  - RESPIRATORY RATE DECREASED [None]
  - THROMBOSIS [None]
